FAERS Safety Report 15906749 (Version 1)
Quarter: 2019Q1

REPORT INFORMATION
  Report Type: Spontaneous
  Country: US (occurrence: US)
  Receive Date: 20190204
  Receipt Date: 20190204
  Transmission Date: 20190417
  Serious: No
  Sender: FDA-Public Use
  Company Number: US-BAUSCH-BL-2019-002157

PATIENT
  Sex: Female
  Weight: 61 kg

DRUGS (2)
  1. TRETINOIN CREAM 0.1% [Suspect]
     Active Substance: TRETINOIN
     Indication: OFF LABEL USE
  2. TRETINOIN CREAM 0.1% [Suspect]
     Active Substance: TRETINOIN
     Indication: SKIN WRINKLING
     Route: 023

REACTIONS (2)
  - Alopecia [Not Recovered/Not Resolved]
  - Off label use [Recovered/Resolved]
